FAERS Safety Report 5163062-2 (Version None)
Quarter: 2006Q4

REPORT INFORMATION
  Report Type: 
  Country: None (occurrence: None)
  Receive Date: 20061201
  Receipt Date: 20061121
  Transmission Date: 20070319
  Serious: Yes (Hospitalization)
  Sender: FDA-Public Use
  Company Number: IT-ABBOTT-06P-083-0351086-00

PATIENT
  Sex: Male

DRUGS (2)
  1. DEPAKENE [Suspect]
     Indication: EPILEPSY
     Dosage: IN THE EVENING
     Route: 048
     Dates: start: 20050101
  2. DEPAKENE [Suspect]
     Dosage: 500 MG IN AM, 150 MG IN PM
     Route: 048
     Dates: start: 20010101, end: 20050101

REACTIONS (5)
  - DIARRHOEA [None]
  - DIZZINESS [None]
  - HYPOACUSIS [None]
  - INFLUENZA LIKE ILLNESS [None]
  - VISION BLURRED [None]
